FAERS Safety Report 6256033-6 (Version None)
Quarter: 2009Q3

REPORT INFORMATION
  Report Type: 
  Country: None (occurrence: None)
  Receive Date: 20090706
  Receipt Date: 20090629
  Transmission Date: 20100115
  Serious: Yes (Death)
  Sender: FDA-Public Use
  Company Number: TR-CELGENEUS-161-20785-09062246

PATIENT
  Sex: Female
  Weight: 51 kg

DRUGS (2)
  1. THALIDOMIDE [Suspect]
     Indication: MULTIPLE MYELOMA
     Route: 048
  2. MADOPAR [Concomitant]
     Indication: PARKINSON'S DISEASE
     Route: 065
     Dates: start: 20061001, end: 20090626

REACTIONS (1)
  - SUDDEN DEATH [None]
